FAERS Safety Report 8152312 (Version 3)
Quarter: 2013Q2

REPORT INFORMATION
  Report Type: Spontaneous
  Country: US (occurrence: US)
  Receive Date: 20110922
  Receipt Date: 20130517
  Transmission Date: 20140414
  Serious: Yes (Other)
  Sender: FDA-Public Use
  Company Number: US-ASTRAZENECA-2011SE12756

PATIENT
  Age: 51 Year
  Sex: Male

DRUGS (5)
  1. SEROQUEL [Suspect]
     Route: 048
     Dates: start: 2006
  2. SEROQUEL [Suspect]
     Route: 048
     Dates: start: 20081230
  3. EFFEXOR XR [Concomitant]
     Dosage: 150
     Dates: start: 200612
  4. XANAX [Concomitant]
     Dates: start: 200612
  5. XANAX [Concomitant]
     Dates: start: 20081230

REACTIONS (3)
  - Pancreatitis [Unknown]
  - Diabetic coma [Unknown]
  - Type 2 diabetes mellitus [Unknown]
